FAERS Safety Report 24120881 (Version 1)
Quarter: 2024Q3

REPORT INFORMATION
  Report Type: Spontaneous
  Country: AU (occurrence: AU)
  Receive Date: 20240722
  Receipt Date: 20240722
  Transmission Date: 20241017
  Serious: Yes (Other)
  Sender: BAYER
  Company Number: AU-BAYER-2024A104757

PATIENT
  Age: 73 Year
  Sex: Male

DRUGS (6)
  1. VITRAKVI [Suspect]
     Active Substance: LAROTRECTINIB
     Indication: EGFR gene mutation
     Dosage: UNK
  2. VITRAKVI [Suspect]
     Active Substance: LAROTRECTINIB
     Indication: Non-small cell lung cancer
  3. VITRAKVI [Suspect]
     Active Substance: LAROTRECTINIB
     Indication: NTRK gene fusion cancer
  4. OSIMERTINIB [Concomitant]
     Active Substance: OSIMERTINIB
     Indication: EGFR gene mutation
     Dosage: UNK
  5. OSIMERTINIB [Concomitant]
     Active Substance: OSIMERTINIB
     Indication: Non-small cell lung cancer
  6. OSIMERTINIB [Concomitant]
     Active Substance: OSIMERTINIB
     Indication: Bone disorder

REACTIONS (1)
  - Non-small cell lung cancer [Unknown]
